FAERS Safety Report 8366294-5 (Version None)
Quarter: 2012Q2

REPORT INFORMATION
  Report Type: 
  Country: None (occurrence: None)
  Receive Date: 20120517
  Receipt Date: 20120514
  Transmission Date: 20120825
  Serious: Yes (Other)
  Sender: FDA-Public Use
  Company Number: PHEH2012US010073

PATIENT
  Sex: Female
  Weight: 58.503 kg

DRUGS (4)
  1. GILENYA [Suspect]
     Indication: MULTIPLE SCLEROSIS
     Dosage: 0.5 MG, QD
     Route: 048
     Dates: start: 20120413
  2. VITAMIN D [Concomitant]
  3. LAMICTAL [Concomitant]
  4. LYRICA [Concomitant]

REACTIONS (2)
  - MACULAR OEDEMA [None]
  - VISUAL IMPAIRMENT [None]
